FAERS Safety Report 16092188 (Version 1)
Quarter: 2019Q1

REPORT INFORMATION
  Report Type: Spontaneous
  Country: US (occurrence: US)
  Receive Date: 20190319
  Receipt Date: 20190319
  Transmission Date: 20190418
  Serious: No
  Sender: FDA-Public Use
  Company Number: US-TEVA-2019-US-1025005

PATIENT
  Sex: Female

DRUGS (1)
  1. AJOVY [Suspect]
     Active Substance: FREMANEZUMAB-VFRM
     Dosage: UNKNOWN

REACTIONS (4)
  - Drug ineffective [Unknown]
  - Pain [Unknown]
  - Patient dissatisfaction with treatment [Unknown]
  - Muscle spasms [Unknown]
